FAERS Safety Report 13468733 (Version 1)
Quarter: 2017Q2

REPORT INFORMATION
  Report Type: Other
  Country: DE (occurrence: DE)
  Receive Date: 20170421
  Receipt Date: 20170421
  Transmission Date: 20170830
  Serious: Yes (Other)
  Sender: FDA-Public Use
  Company Number: DE-LABORATOIRE HRA PHARMA-1065651

PATIENT
  Age: 33 Year
  Sex: Female
  Weight: 60 kg

DRUGS (1)
  1. ELLA [Suspect]
     Active Substance: ULIPRISTAL ACETATE
     Route: 048
     Dates: start: 20161208, end: 20161208

REACTIONS (4)
  - Vaginal haemorrhage [None]
  - Unintended pregnancy [None]
  - Drug ineffective [None]
  - Abortion missed [None]

NARRATIVE: CASE EVENT DATE: 20170131
